FAERS Safety Report 6645124-3 (Version None)
Quarter: 2010Q1

REPORT INFORMATION
  Report Type: 
  Country: None (occurrence: None)
  Receive Date: 20100322
  Receipt Date: 20100308
  Transmission Date: 20100710
  Serious: Yes (Other)
  Sender: FDA-Public Use
  Company Number: GB-MYLANLABS-2010S1001709

PATIENT
  Age: 20 Year
  Sex: Female
  Weight: 92 kg

DRUGS (9)
  1. CITALOPRAM HYDROBROMIDE [Suspect]
     Indication: OBSESSIVE-COMPULSIVE DISORDER
  2. CLOZARIL [Interacting]
     Indication: SCHIZOPHRENIA
     Dates: start: 20090401, end: 20100115
  3. CLOZARIL [Interacting]
     Indication: CONSTIPATION
     Dates: start: 20090401, end: 20100115
  4. CLOZARIL [Interacting]
     Dates: start: 20100115
  5. CLOZARIL [Interacting]
     Dates: start: 20100115
  6. CLOZARIL [Interacting]
  7. CLOZARIL [Interacting]
  8. CLOZARIL [Concomitant]
     Route: 048
     Dates: start: 20090126
  9. CLOZARIL [Concomitant]
     Indication: DYSPEPSIA
     Route: 048
     Dates: start: 20091230

REACTIONS (8)
  - ANTIPSYCHOTIC DRUG LEVEL INCREASED [None]
  - ANXIETY [None]
  - DRUG INEFFECTIVE [None]
  - DRUG INTERACTION [None]
  - HYPOCHONDRIASIS [None]
  - IMPULSIVE BEHAVIOUR [None]
  - OBSESSIVE-COMPULSIVE DISORDER [None]
  - REPETITIVE SPEECH [None]
